FAERS Safety Report 17766833 (Version 1)
Quarter: 2020Q2

REPORT INFORMATION
  Report Type: Spontaneous
  Country: DE (occurrence: DE)
  Receive Date: 20200511
  Receipt Date: 20200511
  Transmission Date: 20200714
  Serious: Yes (Other)
  Sender: FDA-Public Use
  Company Number: DE-MYLANLABS-2020M1045149

PATIENT
  Sex: Female

DRUGS (1)
  1. VALSARTAN. [Suspect]
     Active Substance: VALSARTAN
     Indication: PRODUCT USED FOR UNKNOWN INDICATION
     Dosage: DAILY INTAKE
     Route: 048

REACTIONS (3)
  - Breast cancer female [Unknown]
  - Intestinal polyp [Unknown]
  - Product impurity [Unknown]

NARRATIVE: CASE EVENT DATE: 2016
